FAERS Safety Report 12936429 (Version 2)
Quarter: 2016Q4

REPORT INFORMATION
  Report Type: Spontaneous
  Country: JP (occurrence: JP)
  Receive Date: 20161114
  Receipt Date: 20161118
  Transmission Date: 20170207
  Serious: Yes (Death, Hospitalization, Other)
  Sender: FDA-Public Use
  Company Number: JP-BAYER-2016-211635

PATIENT
  Age: 79 Year
  Sex: Female
  Weight: 43.1 kg

DRUGS (7)
  1. LISINOPRIL. [Concomitant]
     Active Substance: LISINOPRIL
  2. BAYASPIRIN [Suspect]
     Active Substance: ASPIRIN
     Dosage: UNK
     Route: 048
  3. CLOPIDOGREL [Interacting]
     Active Substance: CLOPIDOGREL BISULFATE
     Route: 048
  4. NICORANDIL [Concomitant]
     Active Substance: NICORANDIL
     Dosage: UNK
  5. CEFCAPENE PIVOXIL HYDROCHLORIDE [Concomitant]
     Active Substance: CEFCAPENE PIVOXIL HYDROCHLORIDE
     Indication: LOWER URINARY TRACT SYMPTOMS
  6. PRAVASTATIN SODIUM. [Concomitant]
     Active Substance: PRAVASTATIN SODIUM
  7. CILNIDIPINE [Concomitant]
     Active Substance: CILNIDIPINE

REACTIONS (7)
  - Cerebral haemorrhage [Fatal]
  - Pain in extremity [None]
  - Peripheral swelling [None]
  - Coagulation factor V level decreased [None]
  - Drug administration error [Fatal]
  - Labelled drug-drug interaction medication error [Fatal]
  - Haematoma [None]

NARRATIVE: CASE EVENT DATE: 2014
